FAERS Safety Report 12251064 (Version 1)
Quarter: 2016Q2

REPORT INFORMATION
  Report Type: Spontaneous
  Country: US (occurrence: US)
  Receive Date: 20160410
  Receipt Date: 20160410
  Transmission Date: 20160815
  Serious: No
  Sender: FDA-Public Use
  Company Number: US-JNJFOC-20160303910

PATIENT
  Age: 21 Year
  Sex: Female
  Weight: 54.43 kg

DRUGS (8)
  1. ORAL CONTRACEPTIVE NOS [Concomitant]
     Active Substance: UNSPECIFIED INGREDIENT
     Indication: CONTRACEPTION
     Route: 065
  2. BUPROPION. [Concomitant]
     Active Substance: BUPROPION
     Indication: DEPRESSION
     Route: 048
     Dates: start: 20160202
  3. PREDNISONE. [Concomitant]
     Active Substance: PREDNISONE
     Indication: ANAPHYLACTIC REACTION
     Route: 065
     Dates: start: 20160217
  4. EPINEPHRINE. [Concomitant]
     Active Substance: EPINEPHRINE
     Indication: ANAPHYLACTIC REACTION
     Route: 065
  5. PEPCID [Suspect]
     Active Substance: FAMOTIDINE
     Indication: ANAPHYLACTIC REACTION
     Route: 065
     Dates: start: 20160217
  6. BUPROPION. [Concomitant]
     Active Substance: BUPROPION
     Indication: ANXIETY
     Route: 048
     Dates: start: 20160202
  7. PEPCID [Suspect]
     Active Substance: FAMOTIDINE
     Route: 065
  8. BENADRYL [Suspect]
     Active Substance: DIPHENHYDRAMINE HYDROCHLORIDE
     Indication: ANAPHYLACTIC REACTION
     Route: 065
     Dates: start: 20160217

REACTIONS (2)
  - Off label use [Unknown]
  - Drug ineffective for unapproved indication [Unknown]

NARRATIVE: CASE EVENT DATE: 20160217
